FAERS Safety Report 9347391 (Version 1)
Quarter: 2013Q2

REPORT INFORMATION
  Report Type: Spontaneous
  Country: CO (occurrence: CO)
  Receive Date: 20130613
  Receipt Date: 20130613
  Transmission Date: 20140414
  Serious: Yes (Other)
  Sender: FDA-Public Use
  Company Number: CO-GILEAD-2013-0076979

PATIENT
  Age: 70 Year
  Sex: Male

DRUGS (1)
  1. TRUVADA [Suspect]
     Indication: HIV INFECTION
     Dosage: 1 DF, UNK

REACTIONS (5)
  - Feeling abnormal [Unknown]
  - Palpitations [Unknown]
  - Headache [Unknown]
  - Asthenia [Unknown]
  - Lactic acidosis [Unknown]
